FAERS Safety Report 23520736 (Version 1)
Quarter: 2024Q1

REPORT INFORMATION
  Report Type: 
  Country: None (occurrence: None)
  Receive Date: 20240214
  Receipt Date: 20240214
  Transmission Date: 20240410
  Serious: No
  Sender: FDA-Public Use
  Company Number: US-ROCHE-3507858

PATIENT

DRUGS (3)
  1. ATEZOLIZUMAB [Suspect]
     Active Substance: ATEZOLIZUMAB
  2. ETOPOSIDE [Concomitant]
     Active Substance: ETOPOSIDE
     Dates: start: 20240105
  3. PLATINUM [Concomitant]
     Active Substance: PLATINUM
     Dates: start: 20240105

REACTIONS (3)
  - Febrile neutropenia [None]
  - Neutrophil count decreased [None]
  - White blood cell count decreased [None]

NARRATIVE: CASE EVENT DATE: 20240103
